FAERS Safety Report 5011743-3 (Version None)
Quarter: 2006Q2

REPORT INFORMATION
  Report Type: 
  Country: None (occurrence: None)
  Receive Date: 20060524
  Receipt Date: 20060524
  Transmission Date: 20061013
  Serious: Yes (Hospitalization)
  Sender: FDA-Public Use
  Company Number: None

PATIENT
  Age: 57 Year
  Sex: Male
  Weight: 145.151 kg

DRUGS (13)
  1. SIMVASTATIN [Suspect]
     Indication: DYSLIPIDAEMIA
     Dosage: 20MG ONCE DAILY ORALLY
     Route: 048
     Dates: start: 20050501, end: 20060307
  2. RISPERIDONE [Concomitant]
  3. HALOPERIDONE [Concomitant]
  4. METOPROLOL [Concomitant]
  5. LOSARTAN POTASSIUM [Concomitant]
  6. HYDRALAZINE HCL [Concomitant]
  7. METOCLOPRAMIDE [Concomitant]
  8. COMBIVENT [Concomitant]
  9. BISACODYL [Concomitant]
  10. LANSOPRAZOLE [Concomitant]
  11. VANCOMYCIN [Concomitant]
  12. DIPHENHYDRAMINE HCL [Concomitant]
  13. ACETAMINOPHEN [Concomitant]

REACTIONS (3)
  - AGITATION [None]
  - DISORIENTATION [None]
  - RHABDOMYOLYSIS [None]
